FAERS Safety Report 19411939 (Version 2)
Quarter: 2021Q3

REPORT INFORMATION
  Report Type: Report from Study
  Country: None (occurrence: CO)
  Receive Date: 20210614
  Receipt Date: 20210709
  Transmission Date: 20211014
  Serious: Yes (Other)
  Sender: FDA-Public Use
  Company Number: CO-ABBVIE-21K-036-3948115-00

PATIENT
  Sex: Male
  Weight: 55 kg

DRUGS (5)
  1. HUMIRA [Suspect]
     Active Substance: ADALIMUMAB
     Indication: JUVENILE IDIOPATHIC ARTHRITIS
     Route: 058
  2. PREDNISOLONE. [Concomitant]
     Active Substance: PREDNISOLONE
     Indication: ARTHRITIS
     Route: 048
     Dates: start: 2017
  3. HUMIRA [Suspect]
     Active Substance: ADALIMUMAB
     Indication: JUVENILE IDIOPATHIC ARTHRITIS
     Route: 058
     Dates: start: 20170120
  4. FOLIC ACID. [Concomitant]
     Active Substance: FOLIC ACID
     Indication: PRODUCT USED FOR UNKNOWN INDICATION
     Route: 048
     Dates: start: 2017
  5. METHOTREXATE. [Concomitant]
     Active Substance: METHOTREXATE
     Indication: ARTHRITIS
     Route: 048
     Dates: start: 2017

REACTIONS (8)
  - Eye disorder [Not Recovered/Not Resolved]
  - Choking sensation [Not Recovered/Not Resolved]
  - Vascular injury [Not Recovered/Not Resolved]
  - Asphyxia [Not Recovered/Not Resolved]
  - Funnel chest acquired [Not Recovered/Not Resolved]
  - Blindness unilateral [Not Recovered/Not Resolved]
  - Post procedural erythema [Not Recovered/Not Resolved]
  - Eye inflammation [Not Recovered/Not Resolved]

NARRATIVE: CASE EVENT DATE: 2019
